FAERS Safety Report 18199073 (Version 2)
Quarter: 2020Q4

REPORT INFORMATION
  Report Type: Report from Study
  Country: None (occurrence: US)
  Receive Date: 20200826
  Receipt Date: 20201021
  Transmission Date: 20210113
  Serious: Yes (Other)
  Sender: FDA-Public Use
  Company Number: US-ABBVIE-20K-163-3346011-00

PATIENT
  Age: 61 Year
  Sex: Female

DRUGS (1)
  1. HUMIRA [Suspect]
     Active Substance: ADALIMUMAB
     Indication: RHEUMATOID ARTHRITIS
     Route: 058

REACTIONS (9)
  - Fall [Recovered/Resolved]
  - Cholelithiasis [Unknown]
  - Osteoporosis [Not Recovered/Not Resolved]
  - Loss of consciousness [Unknown]
  - Skin laceration [Unknown]
  - Feeling abnormal [Unknown]
  - Concussion [Unknown]
  - Rib fracture [Unknown]
  - Pain in extremity [Not Recovered/Not Resolved]

NARRATIVE: CASE EVENT DATE: 2018
